FAERS Safety Report 7064766-7 (Version None)
Quarter: 2010Q4

REPORT INFORMATION
  Report Type: 
  Country: None (occurrence: None)
  Receive Date: 20101027
  Receipt Date: 19790912
  Transmission Date: 20110411
  Serious: Yes (Death, Hospitalization)
  Sender: FDA-Public Use
  Company Number: US-ROCHE-790200034003

PATIENT
  Sex: Female

DRUGS (6)
  1. VALIUM [Suspect]
     Route: 048
  2. DALMANE [Suspect]
     Route: 048
     Dates: start: 19790901, end: 19790901
  3. DALMANE [Suspect]
     Route: 048
     Dates: start: 19790904, end: 19790904
  4. DEMEROL [Suspect]
     Route: 030
  5. VESPRIN [Concomitant]
     Route: 030
     Dates: start: 19790901, end: 19790901
  6. XYLOCAINE [Concomitant]
     Route: 042

REACTIONS (2)
  - DEATH [None]
  - SEDATION [None]
